FAERS Safety Report 22079329 (Version 1)
Quarter: 2023Q1

REPORT INFORMATION
  Report Type: Spontaneous
  Country: US (occurrence: US)
  Receive Date: 20230309
  Receipt Date: 20230309
  Transmission Date: 20230418
  Serious: Yes (Other)
  Sender: FDA-Public Use
  Company Number: US-ANIPHARMA-2023-US-005280

PATIENT
  Sex: Male

DRUGS (1)
  1. FLECAINIDE ACETATE [Suspect]
     Active Substance: FLECAINIDE ACETATE
     Indication: Arrhythmia
     Dosage: UNKNOWN
     Route: 065
     Dates: start: 20230227

REACTIONS (1)
  - Atrial fibrillation [Unknown]
